FAERS Safety Report 14402994 (Version 2)
Quarter: 2018Q1

REPORT INFORMATION
  Report Type: Report from Study
  Country: DE (occurrence: DE)
  Receive Date: 20180117
  Receipt Date: 20180201
  Transmission Date: 20180509
  Serious: Yes (Hospitalization)
  Sender: FDA-Public Use
  Company Number: DE-PFIZER INC-2018012861

PATIENT
  Age: 74 Year
  Sex: Female
  Weight: 60 kg

DRUGS (16)
  1. DEXAMETHASON /00016001/ [Concomitant]
     Active Substance: DEXAMETHASONE
     Dosage: 4 MG, 1X/DAY
     Route: 048
     Dates: start: 20170216, end: 20170703
  2. DEXAMETHASON /00016001/ [Concomitant]
     Active Substance: DEXAMETHASONE
     Indication: PROPHYLAXIS
     Dosage: 2 MG, 1X/DAY
     Route: 048
     Dates: end: 20170215
  3. METOPROLOL. [Concomitant]
     Active Substance: METOPROLOL
     Indication: ESSENTIAL HYPERTENSION
     Dosage: 100 MG, 1X/DAY
     Dates: end: 2017
  4. CARBOPLATIN. [Suspect]
     Active Substance: CARBOPLATIN
     Indication: NON-SMALL CELL LUNG CANCER
     Dosage: 3 MG/MIN/ML
     Route: 041
     Dates: start: 20170216, end: 20170629
  5. PANTOPRAZOL [Concomitant]
     Active Substance: PANTOPRAZOLE SODIUM
     Indication: GASTROOESOPHAGEAL REFLUX DISEASE
     Dosage: 40 MILLIGRAM
     Dates: end: 2017
  6. RANITIC [Concomitant]
     Active Substance: RANITIDINE HYDROCHLORIDE
     Indication: PROPHYLAXIS
     Dosage: 50 MG, UNK
     Route: 041
     Dates: start: 20170216, end: 20170629
  7. ALOXI [Concomitant]
     Active Substance: PALONOSETRON HYDROCHLORIDE
     Indication: MUCOSAL INFLAMMATION
     Dosage: 250 UG, 1X/DAY
     Route: 041
     Dates: start: 20170406, end: 20170629
  8. SOLU-DECORTIN [Concomitant]
     Active Substance: PREDNISOLONE SODIUM SUCCINATE
     Indication: PROPHYLAXIS
     Dosage: 100 MG, UNK
     Route: 041
     Dates: start: 20170216, end: 20170629
  9. CLEXANE [Concomitant]
     Active Substance: ENOXAPARIN SODIUM
     Indication: THROMBOSIS
     Dosage: 1.2 ML 1X/DAY; 60 MG/-80 MG/-100 MG
     Dates: start: 201701, end: 201707
  10. ABRAXANE [Suspect]
     Active Substance: PACLITAXEL
     Indication: NON-SMALL CELL LUNG CANCER
     Dosage: 100 MILLIGRAM/SQ. METER
     Route: 041
     Dates: start: 20170216
  11. ABRAXANE [Suspect]
     Active Substance: PACLITAXEL
     Dosage: 100 MILLIGRAM/SQ. METER
     Route: 041
     Dates: start: 20170629, end: 20170629
  12. TILIDIN [Concomitant]
     Active Substance: NALOXONE HYDROCHLORIDE\TILIDINE HYDROCHLORIDE
     Indication: MUSCLE SPASMS
     Dosage: 4 MILLIGRAM
     Route: 048
     Dates: start: 20170619, end: 20170619
  13. TILIDIN [Concomitant]
     Active Substance: NALOXONE HYDROCHLORIDE\TILIDINE HYDROCHLORIDE
     Indication: ABDOMINAL PAIN
  14. SIMVASTATIN ACCORD [Concomitant]
     Active Substance: SIMVASTATIN
     Indication: PROPHYLAXIS
     Dosage: 10 MG/-20 MG/-40 MG/-80MG
     Route: 048
     Dates: end: 2017
  15. FENISTIL [Concomitant]
     Active Substance: DIMETHINDENE
     Indication: PROPHYLAXIS
     Dosage: 4 MG, UNK
     Route: 041
     Dates: start: 20170216, end: 20170629
  16. MCP [Concomitant]
     Active Substance: METOCLOPRAMIDE HYDROCHLORIDE
     Indication: PROPHYLAXIS
     Dosage: 10 MG, UNK
     Route: 048
     Dates: start: 20170216, end: 2017

REACTIONS (1)
  - Non-cardiac chest pain [Not Recovered/Not Resolved]

NARRATIVE: CASE EVENT DATE: 20170706
